FAERS Safety Report 8162284-6 (Version None)
Quarter: 2012Q1

REPORT INFORMATION
  Report Type: 
  Country: None (occurrence: None)
  Receive Date: 20120224
  Receipt Date: 20120217
  Transmission Date: 20120608
  Serious: Yes (Death, Life-Threatening, Hospitalization)
  Sender: FDA-Public Use
  Company Number: PL-CELGENEUS-129-C5013-11022486

PATIENT
  Sex: Male
  Weight: 91 kg

DRUGS (17)
  1. ENOXAPARIN SODIUM [Concomitant]
     Route: 065
     Dates: start: 20110203, end: 20110206
  2. POLOCARD [Concomitant]
     Dosage: 75 MILLIGRAM
     Route: 048
     Dates: start: 20100821
  3. SODIUM CHLORIDE [Concomitant]
     Route: 065
     Dates: start: 20110203, end: 20110206
  4. LENALIDOMIDE [Suspect]
     Dosage: 5 MILLIGRAM
     Route: 048
     Dates: start: 20100726
  5. ATORIS [Concomitant]
     Dosage: 40 MILLIGRAM
     Route: 048
     Dates: start: 20100819
  6. MUCOSOLVAN [Concomitant]
     Route: 065
     Dates: start: 20110203, end: 20110206
  7. METOPROLOL SUCCINATE [Concomitant]
     Dosage: 25 MILLIGRAM
     Route: 048
     Dates: start: 20100819
  8. KALIPOZ [Concomitant]
     Route: 065
     Dates: start: 20110203, end: 20110206
  9. TARCEFOKSYM [Concomitant]
     Route: 065
     Dates: start: 20110203, end: 20110206
  10. DOPAMINE HCL [Concomitant]
     Route: 065
     Dates: start: 20110203, end: 20110206
  11. LENALIDOMIDE [Suspect]
     Dosage: 10 MILLIGRAM
     Route: 048
     Dates: start: 20110119, end: 20110204
  12. POLOCARD [Concomitant]
     Route: 065
     Dates: start: 20110203, end: 20110206
  13. PLAVIX [Concomitant]
     Dosage: 75 MILLIGRAM
     Route: 048
     Dates: start: 20100821
  14. FUROSEMIDE [Concomitant]
     Route: 065
     Dates: start: 20110203, end: 20110206
  15. BERODUAL [Concomitant]
     Route: 065
     Dates: start: 20110203, end: 20110206
  16. CYCLONAMINE [Concomitant]
     Route: 065
     Dates: start: 20110203, end: 20110206
  17. OMEPRAZOLE [Concomitant]
     Route: 065
     Dates: start: 20110203, end: 20110206

REACTIONS (7)
  - CARDIOPULMONARY FAILURE [None]
  - CARDIAC ARREST [None]
  - CORONARY ARTERY DISEASE [None]
  - PNEUMONIA [None]
  - CARDIOGENIC SHOCK [None]
  - ANAEMIA [None]
  - RENAL FAILURE [None]
